FAERS Safety Report 11866583 (Version 1)
Quarter: 2015Q4

REPORT INFORMATION
  Report Type: Spontaneous
  Country: JP (occurrence: JP)
  Receive Date: 20151224
  Receipt Date: 20151224
  Transmission Date: 20160305
  Serious: Yes (Hospitalization)
  Sender: FDA-Public Use
  Company Number: JP-ROCHE-1682773

PATIENT
  Age: 65 Year
  Sex: Female
  Weight: 36 kg

DRUGS (13)
  1. EDIROL [Suspect]
     Active Substance: ELDECALCITOL
     Indication: OSTEOPOROSIS
     Route: 048
     Dates: start: 201206
  2. URSO [Concomitant]
     Active Substance: URSODIOL
     Dosage: DOSAGE IS UNCERTAIN.
     Route: 048
  3. ALLOPURINOL. [Concomitant]
     Active Substance: ALLOPURINOL
     Dosage: DOSAGE IS UNCERTAIN.
     Route: 048
  4. BIOFERMIN [Concomitant]
     Active Substance: BACILLUS SUBTILIS\LACTOBACILLUS ACIDOPHILUS\STREPTOCOCCUS FAECAIS
     Dosage: DOSAGE IS UNCERTAIN.
     Route: 048
  5. LUNESTA [Concomitant]
     Active Substance: ESZOPICLONE
     Dosage: AMOUNT OF 1 ONCE ADMINISTRATION: 2 (UNIT UNCERTAINTY)
     Route: 048
  6. DEXALTIN [Concomitant]
     Active Substance: DEXAMETHASONE
     Dosage: DOSAGE IS UNCERTAIN.
     Route: 048
  7. GASTER [Concomitant]
     Active Substance: FAMOTIDINE
     Dosage: DOSAGE IS UNCERTAIN.
     Route: 048
  8. CRESTOR [Concomitant]
     Active Substance: ROSUVASTATIN CALCIUM
     Dosage: DOSAGE IS UNCERTAIN.
     Route: 048
  9. OZEX (JAPAN) [Concomitant]
     Active Substance: TOSUFLOXACIN TOSYLATE
     Dosage: DOSAGE IS UNCERTAIN.
     Route: 048
  10. DEPAS [Concomitant]
     Active Substance: ETIZOLAM
     Dosage: DOSAGE IS UNCERTAIN.
     Route: 048
  11. SULPIRIDE [Concomitant]
     Active Substance: SULPIRIDE
     Dosage: DOSAGE IS UNCERTAIN.
     Route: 048
  12. BONVIVA [Suspect]
     Active Substance: IBANDRONATE SODIUM
     Indication: OSTEOPOROSIS
     Route: 042
     Dates: start: 201506
  13. KREMEZIN [Concomitant]
     Active Substance: ACTIVATED CHARCOAL
     Dosage: DOSAGE IS UNCERTAIN.
     Route: 048

REACTIONS (3)
  - Nasopharyngitis [Unknown]
  - Acute kidney injury [Unknown]
  - Hypercalcaemia [Unknown]

NARRATIVE: CASE EVENT DATE: 2015
